FAERS Safety Report 9382084 (Version 3)
Quarter: 2013Q4

REPORT INFORMATION
  Report Type: Spontaneous
  Country: US (occurrence: US)
  Receive Date: 20130703
  Receipt Date: 20131011
  Transmission Date: 20140711
  Serious: Yes (Hospitalization, Other)
  Sender: FDA-Public Use
  Company Number: US-GILEAD-2013-0078348

PATIENT
  Sex: Female

DRUGS (2)
  1. LETAIRIS [Suspect]
     Indication: PRODUCT USED FOR UNKNOWN INDICATION
     Dosage: 5 MG, QD
     Route: 048
     Dates: start: 20130522, end: 20130615
  2. SILDENAFIL CITRATE [Concomitant]
     Dates: start: 20091228

REACTIONS (5)
  - Pneumonia [Recovering/Resolving]
  - Carbon dioxide abnormal [Recovering/Resolving]
  - Hallucination [Recovering/Resolving]
  - Asthenia [Recovering/Resolving]
  - Dyskinesia [Recovering/Resolving]
